FAERS Safety Report 9478608 (Version 1)
Quarter: 2013Q3

REPORT INFORMATION
  Report Type: Spontaneous
  Country: FR (occurrence: FR)
  Receive Date: 20130827
  Receipt Date: 20130827
  Transmission Date: 20140515
  Serious: Yes (Hospitalization)
  Sender: FDA-Public Use
  Company Number: FR-MALLINCKRODT-T201304199

PATIENT
  Age: 63 Year
  Sex: Female

DRUGS (2)
  1. OPTIJECT 350 [Suspect]
     Indication: COMPUTERISED TOMOGRAM HEAD
     Dosage: UNK UNK, SINGLE
     Route: 065
     Dates: start: 20120706, end: 20120706
  2. COTAREG [Suspect]
     Indication: HYPERTENSION
     Dosage: UNK
     Route: 065
     Dates: end: 201208

REACTIONS (1)
  - Pustular psoriasis [Recovered/Resolved]
